FAERS Safety Report 7593726-2 (Version None)
Quarter: 2011Q3

REPORT INFORMATION
  Report Type: 
  Country: None (occurrence: None)
  Receive Date: 20110706
  Receipt Date: 20110622
  Transmission Date: 20111222
  Serious: Yes (Other)
  Sender: FDA-Public Use
  Company Number: PHHY2011JP57286

PATIENT
  Age: 72 Year
  Sex: Female

DRUGS (1)
  1. EVEROLIMUS [Suspect]

REACTIONS (1)
  - LUNG DISORDER [None]
